FAERS Safety Report 18532927 (Version 2)
Quarter: 2020Q4

REPORT INFORMATION
  Report Type: Spontaneous
  Country: BR (occurrence: BR)
  Receive Date: 20201123
  Receipt Date: 20201125
  Transmission Date: 20210114
  Serious: Yes (Other)
  Sender: FDA-Public Use
  Company Number: NVSC2020BR305510

PATIENT
  Age: 49 Year
  Sex: Female

DRUGS (4)
  1. LETROZOLE. [Suspect]
     Active Substance: LETROZOLE
     Indication: BREAST CANCER METASTATIC
     Dosage: 2.5 MG, QD
     Route: 058
     Dates: start: 201906
  2. FULVESTRANT. [Suspect]
     Active Substance: FULVESTRANT
     Indication: BREAST CANCER METASTATIC
     Dosage: 500 MG, QMO (MONTH 1 WITH LOADING DOSE D1 AND D15)
     Route: 030
     Dates: start: 201608, end: 201701
  3. ANASTROZOL [Suspect]
     Active Substance: ANASTROZOLE
     Indication: BREAST CANCER METASTATIC
     Dosage: 1 MG, QD
     Route: 048
     Dates: start: 201102, end: 201508
  4. RIBOCICLIB. [Suspect]
     Active Substance: RIBOCICLIB
     Indication: BREAST CANCER METASTATIC
     Dosage: 3 DF, QD (FOR 21 DAYS)
     Route: 048
     Dates: start: 201906

REACTIONS (3)
  - Breast cancer metastatic [Unknown]
  - Malignant neoplasm progression [Unknown]
  - Intraductal proliferative breast lesion [Unknown]

NARRATIVE: CASE EVENT DATE: 201508
